FAERS Safety Report 18047387 (Version 1)
Quarter: 2020Q3

REPORT INFORMATION
  Report Type: Spontaneous
  Country: US (occurrence: US)
  Receive Date: 20200720
  Receipt Date: 20200720
  Transmission Date: 20201103
  Serious: No
  Sender: FDA-Public Use
  Company Number: US-INCYTE CORPORATION-2020IN006693

PATIENT

DRUGS (2)
  1. JADENU [Suspect]
     Active Substance: DEFERASIROX
     Indication: PRODUCT USED FOR UNKNOWN INDICATION
     Route: 065
  2. JAKAFI [Suspect]
     Active Substance: RUXOLITINIB
     Indication: HAEMOCHROMATOSIS
     Dosage: 5 MILLIGRAM
     Route: 048
     Dates: start: 2016, end: 2020

REACTIONS (2)
  - Off label use [Unknown]
  - Arthralgia [Unknown]

NARRATIVE: CASE EVENT DATE: 2016
